FAERS Safety Report 7813019-5 (Version None)
Quarter: 2011Q4

REPORT INFORMATION
  Report Type: 
  Country: None (occurrence: None)
  Receive Date: 20111013
  Receipt Date: 20110915
  Transmission Date: 20120403
  Serious: Yes (Other)
  Sender: FDA-Public Use
  Company Number: JP-BAYER-2011-086710

PATIENT
  Sex: Male

DRUGS (4)
  1. ASPIRIN [Suspect]
     Dosage: UNK
     Route: 048
  2. PROCYLIN [Concomitant]
     Dosage: UNK
     Route: 048
  3. NICARDIPINE HCL [Concomitant]
     Dosage: UNK
     Route: 065
  4. KAMAG G [Concomitant]
     Dosage: UNK
     Route: 048

REACTIONS (1)
  - HYPOGLYCAEMIC UNCONSCIOUSNESS [None]
